FAERS Safety Report 18518532 (Version 1)
Quarter: 2020Q4

REPORT INFORMATION
  Report Type: Spontaneous
  Country: US (occurrence: US)
  Receive Date: 20201118
  Receipt Date: 20201118
  Transmission Date: 20210114
  Serious: No
  Sender: FDA-Public Use
  Company Number: US-ANIPHARMA-2020-US-021362

PATIENT
  Age: 73 Year
  Sex: Female
  Weight: 114.76 kg

DRUGS (7)
  1. FLECAINIDE ACETATE TABLETS 150 MG [Suspect]
     Active Substance: FLECAINIDE ACETATE
     Indication: ATRIAL FIBRILLATION
     Dosage: 150MG TWICE PER DAY
     Route: 048
     Dates: start: 202007
  2. EPLERONE [Concomitant]
  3. XARELTO [Concomitant]
     Active Substance: RIVAROXABAN
  4. POTASSIUM [Concomitant]
     Active Substance: POTASSIUM
  5. DIGOXIN. [Concomitant]
     Active Substance: DIGOXIN
  6. RINCOQ [Concomitant]
  7. SYNTHROID [Concomitant]
     Active Substance: LEVOTHYROXINE SODIUM

REACTIONS (1)
  - Heart rate increased [Recovered/Resolved]

NARRATIVE: CASE EVENT DATE: 202009
